FAERS Safety Report 6241846-7 (Version None)
Quarter: 2009Q2

REPORT INFORMATION
  Report Type: 
  Country: None (occurrence: None)
  Receive Date: 20090623
  Receipt Date: 20090623
  Transmission Date: 20091009
  Serious: Yes (Other)
  Sender: FDA-Public Use
  Company Number: US-PFIZER INC-2009171412

PATIENT
  Sex: Female

DRUGS (10)
  1. NEURONTIN [Suspect]
     Indication: NEUROPATHY PERIPHERAL
     Dosage: 800 MG, 3X/DAY
     Dates: start: 20050228, end: 20070101
  2. NEURONTIN [Suspect]
     Indication: PAIN
  3. GABAPENTIN [Suspect]
     Dosage: 800 MG, 3X/DAY
     Dates: start: 20070101
  4. HYDROCODONE BITARTRATE [Concomitant]
     Dosage: UNK
  5. CARISOPRODOL [Concomitant]
     Dosage: UNK
  6. CLONAZEPAM [Concomitant]
     Dosage: UNK
  7. SEROQUEL [Concomitant]
     Dosage: UNK
  8. CYMBALTA [Concomitant]
     Dosage: UNK
  9. ZETIA [Concomitant]
     Dosage: UNK
  10. ZOLPIDEM [Concomitant]

REACTIONS (1)
  - DRUG DEPENDENCE [None]
